FAERS Safety Report 4674023-1 (Version None)
Quarter: 2005Q2

REPORT INFORMATION
  Report Type: 
  Country: None (occurrence: None)
  Receive Date: 20050525
  Receipt Date: 20050511
  Transmission Date: 20051028
  Serious: Yes (Hospitalization, Other)
  Sender: FDA-Public Use
  Company Number: 2005033227

PATIENT
  Age: 10 Year
  Sex: Female
  Weight: 38 kg

DRUGS (5)
  1. GENOTROPIN [Suspect]
     Indication: HYPOPITUITARISM
     Dosage: SEE IMAGE
     Route: 058
     Dates: start: 20030616, end: 20040920
  2. GENOTROPIN [Suspect]
     Indication: HYPOPITUITARISM
     Dosage: SEE IMAGE
     Route: 058
     Dates: start: 20020609
  3. GENOTROPIN [Suspect]
     Indication: HYPOPITUITARISM
     Dosage: SEE IMAGE
     Route: 058
     Dates: start: 20050324
  4. POLLAKISU (OXYBUTYNIN HYDROCHLORIDE) [Concomitant]
  5. CEFACLOR [Concomitant]

REACTIONS (4)
  - EAR PAIN [None]
  - HYPOACUSIS [None]
  - PITUITARY ENLARGEMENT [None]
  - TINNITUS [None]
